FAERS Safety Report 7077342-7 (Version None)
Quarter: 2010Q4

REPORT INFORMATION
  Report Type: 
  Country: None (occurrence: None)
  Receive Date: 20101029
  Receipt Date: 20101029
  Transmission Date: 20110411
  Serious: Yes (Hospitalization)
  Sender: FDA-Public Use
  Company Number: None

PATIENT
  Age: 76 Year
  Sex: Male
  Weight: 108.8633 kg

DRUGS (2)
  1. VASOTEC [Suspect]
     Indication: HYPERTENSION
     Dosage: 1 PILL DAILY PO
     Route: 048
     Dates: start: 20101021
  2. ADALAT [Suspect]

REACTIONS (7)
  - EYE SWELLING [None]
  - FALL [None]
  - LIP SWELLING [None]
  - LOSS OF CONSCIOUSNESS [None]
  - PRURITUS [None]
  - SWOLLEN TONGUE [None]
  - URTICARIA [None]
